FAERS Safety Report 8080258-0 (Version None)
Quarter: 2012Q1

REPORT INFORMATION
  Report Type: 
  Country: None (occurrence: None)
  Receive Date: 20120130
  Receipt Date: 20120120
  Transmission Date: 20120608
  Serious: Yes (Hospitalization)
  Sender: FDA-Public Use
  Company Number: US-BAYER-2011-013055

PATIENT
  Age: 31 Year
  Sex: Female
  Weight: 113.38 kg

DRUGS (1)
  1. YAZ [Suspect]
     Indication: CONTRACEPTION
     Dosage: UNK
     Route: 048
     Dates: start: 20080501, end: 20080614

REACTIONS (2)
  - PAIN [None]
  - PORTAL VEIN THROMBOSIS [None]
